FAERS Safety Report 23377941 (Version 1)
Quarter: 2024Q1

REPORT INFORMATION
  Report Type: Spontaneous
  Country: US (occurrence: None)
  Receive Date: 20240105
  Receipt Date: 20240105
  Transmission Date: 20240409
  Serious: Yes (Disabling, Other)
  Sender: FDA-Public Use
  Company Number: None

PATIENT
  Age: 59 Year
  Sex: Female
  Weight: 68.04 kg

DRUGS (12)
  1. MOUNJARO [Suspect]
     Active Substance: TIRZEPATIDE
     Indication: Weight decreased
     Dosage: OTHER QUANTITY : 1 INJECTION(S) ;?
     Route: 058
     Dates: start: 20221213, end: 20231213
  2. Estedradiol [Concomitant]
  3. Progrestrone [Concomitant]
  4. Progestrone [Concomitant]
  5. XANAX [Concomitant]
     Active Substance: ALPRAZOLAM
  6. PREDNISONE [Concomitant]
     Active Substance: PREDNISONE
  7. VALTREX [Concomitant]
     Active Substance: VALACYCLOVIR HYDROCHLORIDE
  8. Nature Made Mult + Omega 3 [Concomitant]
  9. Nature^s Bounty - Hair, Skin and Nails [Concomitant]
  10. VitaFusion Fiber Well Gummies [Concomitant]
  11. CALCIUM [Concomitant]
     Active Substance: CALCIUM
  12. Nature Made Viatmin C [Concomitant]

REACTIONS (4)
  - Deafness unilateral [None]
  - Gait disturbance [None]
  - Gait disturbance [None]
  - Therapy interrupted [None]

NARRATIVE: CASE EVENT DATE: 20221213
